FAERS Safety Report 6266375-6 (Version None)
Quarter: 2009Q3

REPORT INFORMATION
  Report Type: 
  Country: None (occurrence: None)
  Receive Date: 20090713
  Receipt Date: 20090630
  Transmission Date: 20100115
  Serious: Yes (Hospitalization, Other)
  Sender: FDA-Public Use
  Company Number: US-ROCHE-626047

PATIENT
  Sex: Female

DRUGS (2)
  1. PEG-INTERFERON A-2A (RO 25-8310) [Suspect]
     Indication: HEPATITIS C
     Dosage: FORM: PFS, PATIENT IN WEEK 25
     Route: 065
     Dates: start: 20090109
  2. RIBAVIRIN (NON-ROCHE) [Suspect]
     Indication: HEPATITIS C
     Dosage: DIVIDED DOSES, PATIENT IN WEEK 25
     Route: 065
     Dates: start: 20090109

REACTIONS (22)
  - ALANINE AMINOTRANSFERASE INCREASED [None]
  - ARACHNOIDITIS [None]
  - ASPARTATE AMINOTRANSFERASE INCREASED [None]
  - BACK PAIN [None]
  - BLOOD UREA INCREASED [None]
  - DECREASED APPETITE [None]
  - DYSPNOEA [None]
  - FATIGUE [None]
  - GAIT DISTURBANCE [None]
  - HAEMOGLOBIN DECREASED [None]
  - MEAN CELL HAEMOGLOBIN INCREASED [None]
  - MONOCYTE COUNT INCREASED [None]
  - NAUSEA [None]
  - PAIN [None]
  - PALLOR [None]
  - PLATELET COUNT DECREASED [None]
  - PYREXIA [None]
  - RED BLOOD CELL COUNT DECREASED [None]
  - RED CELL DISTRIBUTION WIDTH INCREASED [None]
  - SPINAL FUSION SURGERY [None]
  - WEIGHT DECREASED [None]
  - WHITE BLOOD CELL COUNT DECREASED [None]
